FAERS Safety Report 9081732 (Version 1)
Quarter: 2013Q1

REPORT INFORMATION
  Report Type: Spontaneous
  Country: US (occurrence: US)
  Receive Date: 20130218
  Receipt Date: 20130218
  Transmission Date: 20140127
  Serious: No
  Sender: FDA-Public Use
  Company Number: US-PFIZER INC-2013060551

PATIENT
  Age: 74 Year
  Sex: Female

DRUGS (3)
  1. ADVIL [Suspect]
     Indication: PAIN
     Dosage: 400 MG, FOUR TIMES A DAY (200MG 2, FOUR TIMES A DAY)
     Route: 048
     Dates: start: 201302, end: 201302
  2. BABY ASPIRIN [Concomitant]
     Dosage: UNK
  3. LORAZEPAM [Concomitant]
     Dosage: UNK

REACTIONS (1)
  - Hypoaesthesia oral [Recovered/Resolved]
